FAERS Safety Report 16219574 (Version 2)
Quarter: 2019Q2

REPORT INFORMATION
  Report Type: Spontaneous
  Country: DE (occurrence: DE)
  Receive Date: 20190420
  Receipt Date: 20190513
  Transmission Date: 20190711
  Serious: Yes (Death, Life-Threatening, Hospitalization)
  Sender: FDA-Public Use
  Company Number: DE-ABBVIE-19K-062-2751038-00

PATIENT
  Age: 9 Year
  Sex: Male
  Weight: 29.3 kg

DRUGS (30)
  1. VENETOCLAX. [Suspect]
     Active Substance: VENETOCLAX
     Dosage: 350 MG, 1 IN 1 D
     Route: 048
     Dates: start: 20190307, end: 20190307
  2. ETOPOSIDE. [Suspect]
     Active Substance: ETOPOSIDE
     Indication: NEOPLASM MALIGNANT
     Dosage: 100 MG/M2, ONCE
     Route: 042
     Dates: start: 20190309, end: 20190309
  3. MORPHINE [Concomitant]
     Active Substance: MORPHINE
     Indication: BONE PAIN
     Dosage: CONTINUOUS (30 MG)
     Route: 042
     Dates: start: 20190304, end: 20190307
  4. MORPHINE [Concomitant]
     Active Substance: MORPHINE
     Dosage: 1 MG, 2 IN 1 D
     Route: 042
     Dates: start: 20190304, end: 20190304
  5. JONOSTERIL [Concomitant]
     Indication: FLUID REPLACEMENT
     Dosage: CONTINUOUS (1 LIT) JONOSTERIL HD 5
     Route: 042
     Dates: start: 20190304, end: 20190307
  6. PANTOPRAZOLE [Concomitant]
     Active Substance: PANTOPRAZOLE
     Indication: PROPHYLAXIS
     Dosage: 20 MG, 1 IN 1 D
     Route: 048
     Dates: start: 20180406
  7. PIPERACILLIN/TAZOBACTAM [Concomitant]
     Active Substance: PIPERACILLIN SODIUM\TAZOBACTAM SODIUM
     Indication: FEBRILE NEUTROPENIA
     Dosage: 3.3 G, 3 IN 1 D
     Route: 042
     Dates: start: 20190304, end: 20190312
  8. SODIUM PICOSULFATE [Concomitant]
     Active Substance: SODIUM PICOSULFATE
     Indication: CONSTIPATION
     Dosage: 10 DROP,AS REQUIRED
     Route: 048
     Dates: start: 20190305, end: 20190326
  9. VOMEX A [Concomitant]
     Active Substance: DIMENHYDRINATE
     Indication: NAUSEA
     Dosage: 4 ML, AS REQUIRED
     Route: 042
     Dates: start: 20190310, end: 20190311
  10. AMBISOME [Concomitant]
     Active Substance: AMPHOTERICIN B
     Indication: PROPHYLAXIS
     Dosage: 32 MG, EVERY OTHER DAY
     Route: 042
     Dates: start: 20181229, end: 20190325
  11. KALINOR [Concomitant]
     Indication: MINERAL SUPPLEMENTATION
     Dosage: 40 MMOL, AS REQUIRED
     Route: 048
     Dates: start: 20190126
  12. PIPERACILLIN/TAZOBACTAM [Concomitant]
     Active Substance: PIPERACILLIN SODIUM\TAZOBACTAM SODIUM
     Indication: ANTIBIOTIC PROPHYLAXIS
  13. ACICLOVIR [Concomitant]
     Active Substance: ACYCLOVIR
     Indication: PROPHYLAXIS
     Dosage: 600 MG, 3 IN 1 D
     Route: 048
     Dates: start: 20181228
  14. CYTARABINE. [Suspect]
     Active Substance: CYTARABINE
     Indication: NEOPLASM MALIGNANT
     Dosage: 108 MG, 1 IN 1 D
     Route: 042
     Dates: start: 20190313, end: 20190315
  15. TEICOPLANIN [Concomitant]
     Active Substance: TEICOPLANIN
     Indication: PROPHYLAXIS
     Dosage: 450 MG, EVERY OTHER DAY
     Route: 042
     Dates: start: 20181219
  16. CLEMASTINE [Concomitant]
     Active Substance: CLEMASTINE
     Indication: PREMEDICATION
     Dosage: 2 MG, AS REQUIRED
     Route: 042
     Dates: start: 20190305, end: 20190309
  17. VENETOCLAX. [Suspect]
     Active Substance: VENETOCLAX
     Dosage: 500 MG, 1 IN 1 D
     Route: 048
     Dates: start: 20190320, end: 20190320
  18. PEG/L-ASPARAGINASE [Suspect]
     Active Substance: PEGASPARGASE
     Indication: NEOPLASM MALIGNANT
     Dosage: 2500 IU/M2, ONCE
     Route: 042
     Dates: start: 20190309, end: 20190309
  19. ZOFRAN [Concomitant]
     Active Substance: ONDANSETRON HYDROCHLORIDE
     Indication: NAUSEA
     Dosage: UNK
     Route: 048
     Dates: start: 20190116, end: 20190303
  20. METAMIZOLE [Concomitant]
     Active Substance: METAMIZOLE
     Indication: PRODUCT USED FOR UNKNOWN INDICATION
     Dosage: 500 MG, 2 IN 1 D
     Route: 048
     Dates: start: 20190304, end: 20190304
  21. VENETOCLAX. [Suspect]
     Active Substance: VENETOCLAX
     Indication: NEOPLASM MALIGNANT
     Dosage: 120 MG, 1 IN 1 D
     Route: 048
     Dates: start: 20190306, end: 20190306
  22. VERGENTAN [Concomitant]
     Active Substance: ALIZAPRIDE HYDROCHLORIDE
     Indication: NAUSEA
     Dosage: 50 MG, AS REQUIRED
     Route: 030
     Dates: start: 20190308, end: 20190310
  23. VENETOCLAX. [Suspect]
     Active Substance: VENETOCLAX
     Dosage: 250 MG, 1 IN 1 D
     Route: 048
     Dates: start: 20190322, end: 20190326
  24. MACROGOL [Concomitant]
     Active Substance: POLYETHYLENE GLYCOLS
     Indication: CONSTIPATION
     Dosage: 1 SACHET,AS REQUIRED
     Route: 048
     Dates: start: 20190305, end: 20190326
  25. VENETOCLAX. [Suspect]
     Active Substance: VENETOCLAX
     Dosage: 350 MG, 1 IN 1 D
     Route: 048
     Dates: start: 20190308, end: 20190319
  26. CYTARABINE. [Suspect]
     Active Substance: CYTARABINE
     Dosage: 108 MG, 1 IN 1 D
     Route: 042
     Dates: start: 20190309, end: 20190312
  27. AMPHOTERICIN B. [Concomitant]
     Active Substance: AMPHOTERICIN B
     Indication: ANTIFUNGAL PROPHYLAXIS
     Route: 048
  28. ZOFRAN [Concomitant]
     Active Substance: ONDANSETRON HYDROCHLORIDE
     Dosage: UNK
     Route: 042
     Dates: start: 20190304
  29. METAMIZOLE [Concomitant]
     Active Substance: METAMIZOLE
     Dosage: 500 MG, 4 IN 1 D
     Route: 048
     Dates: start: 20190305, end: 20190311
  30. TRIMETHOPRIM SULFAMETHOXAZOLE [Concomitant]
     Active Substance: SULFAMETHOXAZOLE\TRIMETHOPRIM
     Indication: PROPHYLAXIS
     Dosage: UNK
     Route: 048

REACTIONS (5)
  - Sepsis [Fatal]
  - Hepatosplenomegaly [Unknown]
  - Abdominal pain [Fatal]
  - Enterobacter test positive [Unknown]
  - Multiple organ dysfunction syndrome [Fatal]

NARRATIVE: CASE EVENT DATE: 20190320
